FAERS Safety Report 8971544 (Version 2)
Quarter: 2012Q4

REPORT INFORMATION
  Report Type: 
  Country: GB (occurrence: GB)
  Receive Date: 20121218
  Receipt Date: 20121227
  Transmission Date: 20130627
  Serious: Yes (Hospitalization, Other)
  Sender: FDA-Public Use
  Company Number: PHFR2012GB006383

PATIENT
  Age: 42 Year
  Sex: Male

DRUGS (8)
  1. CLOZARIL [Suspect]
     Indication: SCHIZOPHRENIA, PARANOID TYPE
     Dosage: 450 mg daily
     Route: 048
     Dates: start: 20090601
  2. CLOZARIL [Suspect]
     Dosage: UNK UKN, Took a weak worth of treatment
     Route: 048
     Dates: start: 20121207
  3. SIMVASTATIN [Concomitant]
     Indication: BLOOD CHOLESTEROL INCREASED
     Dosage: 20 mg, UNK
     Route: 048
  4. HYOSCINE HYDROBROMIDE [Concomitant]
     Indication: SALIVARY HYPERSECRETION
     Dosage: 400 mg, UNK
     Route: 048
  5. SODIUM VALPROATE [Concomitant]
     Dosage: 1500 mg, UNK
  6. PROPRANOLOL [Concomitant]
     Dosage: 20 mg, UNK
     Route: 048
  7. THIAMINE [Concomitant]
     Dosage: 300 mg, UNK
     Route: 048
  8. AMISULPRIDE [Concomitant]
     Indication: SCHIZOPHRENIA
     Dosage: 1000 mg, UNK
     Route: 048

REACTIONS (2)
  - Overdose [Recovered/Resolved]
  - Convulsion [Recovered/Resolved]
